FAERS Safety Report 7709551-5 (Version None)
Quarter: 2011Q3

REPORT INFORMATION
  Report Type: 
  Country: None (occurrence: None)
  Receive Date: 20110825
  Receipt Date: 20110816
  Transmission Date: 20111222
  Serious: Yes (Hospitalization)
  Sender: FDA-Public Use
  Company Number: US-AMGEN-USASP2011041992

PATIENT
  Sex: Male
  Weight: 3.63 kg

DRUGS (3)
  1. ENBREL [Suspect]
     Dosage: 50 MG, PRN
     Dates: start: 20050205, end: 20070601
  2. ENBREL [Suspect]
     Dosage: 50 MG, PRN
     Route: 064
     Dates: start: 20050205, end: 20090701
  3. ENBREL [Suspect]
     Dosage: 50 MG, PRN
     Dates: start: 20050205, end: 20060901

REACTIONS (1)
  - NEONATAL ASPIRATION [None]
